FAERS Safety Report 8865461 (Version 1)
Quarter: 2012Q4

REPORT INFORMATION
  Report Type: 
  Country: US (occurrence: US)
  Receive Date: 20121024
  Receipt Date: 20121024
  Transmission Date: 20130627
  Serious: No
  Sender: FDA-Public Use
  Company Number: US-AMGEN-USASP2012003298

PATIENT
  Sex: Female

DRUGS (10)
  1. ENBREL [Suspect]
     Indication: PRODUCT USED FOR UNKNOWN INDICATION
     Dosage: 50 mg, qwk
  2. METHOTREXATE [Concomitant]
     Dosage: 2.5 mg, UNK
  3. DOLOBID [Concomitant]
     Dosage: 250 mg, UNK
  4. SPIRONOLACTON [Concomitant]
     Dosage: 100 mg, UNK
  5. METOPROLOL [Concomitant]
     Dosage: 100 mg, UNK
  6. PRILOSEC                           /00661201/ [Concomitant]
     Dosage: 20 mg, UNK
  7. MULTIVITAMIN                       /00097801/ [Concomitant]
  8. FOLIC ACID [Concomitant]
  9. CALCIUM [Concomitant]
  10. ASPIRIN [Concomitant]
     Dosage: 81 mg, UNK

REACTIONS (1)
  - Sinusitis [Unknown]
